FAERS Safety Report 20202564 (Version 1)
Quarter: 2021Q4

REPORT INFORMATION
  Report Type: Spontaneous
  Country: US (occurrence: US)
  Receive Date: 20211218
  Receipt Date: 20211218
  Transmission Date: 20220303
  Serious: No
  Sender: FDA-Public Use
  Company Number: US-JNJFOC-20211212098

PATIENT
  Age: 76 Year
  Sex: Female
  Weight: 72.640 kg

DRUGS (8)
  1. XARELTO [Interacting]
     Active Substance: RIVAROXABAN
     Indication: Deep vein thrombosis
     Route: 048
     Dates: start: 20211128
  2. XARELTO [Interacting]
     Active Substance: RIVAROXABAN
     Indication: Thrombosis
     Route: 048
     Dates: start: 20211202
  3. PLAVIX [Interacting]
     Active Substance: CLOPIDOGREL BISULFATE
     Indication: Stent placement
     Route: 065
  4. GABAPENTIN [Concomitant]
     Active Substance: GABAPENTIN
     Indication: Neuropathy peripheral
     Route: 065
  5. ATORVASTATIN [Concomitant]
     Active Substance: ATORVASTATIN
     Indication: Blood cholesterol
     Route: 065
  6. LOSARTAN [Concomitant]
     Active Substance: LOSARTAN
     Indication: Hypertension
     Route: 065
  7. ZYRTEC [Concomitant]
     Active Substance: CETIRIZINE HYDROCHLORIDE
     Indication: Hypersensitivity
     Route: 065
  8. SINGULAIR [Concomitant]
     Active Substance: MONTELUKAST SODIUM
     Indication: Hypersensitivity
     Route: 065

REACTIONS (3)
  - Epistaxis [Recovered/Resolved]
  - Hypersensitivity [Unknown]
  - Drug interaction [Unknown]

NARRATIVE: CASE EVENT DATE: 20211129
